FAERS Safety Report 14188787 (Version 2)
Quarter: 2017Q4

REPORT INFORMATION
  Report Type: Spontaneous
  Country: IT (occurrence: IT)
  Receive Date: 20171114
  Receipt Date: 20171128
  Transmission Date: 20180321
  Serious: Yes (Other)
  Sender: FDA-Public Use
  Company Number: IT-KADMON PHARMACEUTICALS, LLC-KAD201711-001217

PATIENT
  Age: 44 Year
  Sex: Male

DRUGS (9)
  1. DACLATASVIR. [Suspect]
     Active Substance: DACLATASVIR
  2. RIBAVIRIN. [Suspect]
     Active Substance: RIBAVIRIN
  3. RIBAVIRIN. [Suspect]
     Active Substance: RIBAVIRIN
     Indication: HEPATITIS C
  4. RITONAVIR. [Suspect]
     Active Substance: RITONAVIR
     Indication: HIV INFECTION
  5. DACLATASVIR. [Suspect]
     Active Substance: DACLATASVIR
     Indication: HEPATITIS C
  6. ABACAVIR. [Suspect]
     Active Substance: ABACAVIR
     Indication: HIV INFECTION
  7. SOFOSBUVIR [Suspect]
     Active Substance: SOFOSBUVIR
     Indication: HEPATITIS C
  8. ATAZANAVIR. [Suspect]
     Active Substance: ATAZANAVIR SULFATE
     Indication: HIV INFECTION
  9. LAMIVUDINE. [Suspect]
     Active Substance: LAMIVUDINE
     Indication: HIV INFECTION

REACTIONS (3)
  - Hyperbilirubinaemia [Unknown]
  - Anaemia [Unknown]
  - Drug interaction [Unknown]
